FAERS Safety Report 10891151 (Version 7)
Quarter: 2017Q2

REPORT INFORMATION
  Report Type: Spontaneous
  Country: US (occurrence: US)
  Receive Date: 20150305
  Receipt Date: 20170526
  Transmission Date: 20170829
  Serious: Yes (Other)
  Sender: FDA-Public Use
  Company Number: US-009507513-1503USA001367

PATIENT
  Sex: Female

DRUGS (1)
  1. IMPLANON [Suspect]
     Active Substance: ETONOGESTREL
     Indication: CONTRACEPTION
     Dosage: UNK
     Route: 059
     Dates: start: 20121130, end: 20150624

REACTIONS (19)
  - Surgery [Recovered/Resolved]
  - Cholecystectomy [Unknown]
  - Difficulty removing drug implant [Recovered/Resolved]
  - Pregnancy with implant contraceptive [Recovered/Resolved]
  - Metrorrhagia [Unknown]
  - Cellulitis [Unknown]
  - Device deployment issue [Recovered/Resolved]
  - Difficulty removing drug implant [Recovered/Resolved]
  - Pain [Unknown]
  - Difficulty removing drug implant [Recovered/Resolved]
  - Device difficult to use [Recovered/Resolved]
  - Abortion spontaneous [Recovered/Resolved]
  - Device dislocation [Recovered/Resolved]
  - Unintended pregnancy [Recovered/Resolved]
  - Postoperative wound infection [Unknown]
  - Surgery [Recovered/Resolved]
  - Complication associated with device [Recovered/Resolved]
  - Post procedural complication [Unknown]
  - Menstruation irregular [Unknown]

NARRATIVE: CASE EVENT DATE: 20121130
